FAERS Safety Report 9331198 (Version 18)
Quarter: 2015Q2

REPORT INFORMATION
  Report Type: Spontaneous
  Country: CA (occurrence: CA)
  Receive Date: 20130605
  Receipt Date: 20150518
  Transmission Date: 20150821
  Serious: Yes (Life-Threatening, Hospitalization)
  Sender: FDA-Public Use
  Company Number: CA-AMGEN-CANSP2013039312

PATIENT
  Age: 69 Year
  Sex: Female
  Weight: 65.9 kg

DRUGS (22)
  1. DOCETAXEL. [Suspect]
     Active Substance: DOCETAXEL
     Indication: PRODUCT USED FOR UNKNOWN INDICATION
     Dosage: 172 MG, UNK
     Route: 065
     Dates: start: 20130410, end: 20130410
  2. TRASTUZUMAB [Concomitant]
     Active Substance: TRASTUZUMAB
     Indication: HER-2 POSITIVE BREAST CANCER
     Dosage: LAST DOSE PRIOR TO SAE ON 01/MAY/2013 (600 MG,ON DAY 1)
     Route: 058
     Dates: start: 20130410
  3. IMOVANE [Concomitant]
     Active Substance: ZOPICLONE
     Dosage: 3.75 - 7.5 MG, UNK
     Dates: start: 20130512
  4. LOPROX [Concomitant]
     Active Substance: CICLOPIROX\CICLOPIROX OLAMINE
     Dosage: UNK, APPLY 4 TIMES A DAY
     Dates: start: 20130417, end: 20130419
  5. TYLENOL [Concomitant]
     Active Substance: ACETAMINOPHEN
     Dosage: 650 MG, UNK
     Dates: start: 20130410
  6. DECADRON [Concomitant]
     Active Substance: DEXAMETHASONE
     Dosage: DAY BEFORE CHEMO, DAY OF CHEMO AND DAY AFTER CHEMO
     Dates: start: 20121215, end: 20130612
  7. NEUPOGEN [Suspect]
     Active Substance: FILGRASTIM
     Indication: PRODUCT USED FOR UNKNOWN INDICATION
     Dosage: 300 MCG, DAILY
     Route: 058
     Dates: start: 20130422, end: 20130510
  8. IMOVANE [Concomitant]
     Active Substance: ZOPICLONE
     Dosage: 1 IN 1 AS REQUIRED
     Dates: start: 20130115
  9. MORPHINE                           /00036302/ [Concomitant]
     Active Substance: MORPHINE
     Dosage: 2-5 MG DAILY
     Dates: start: 20130511, end: 20130511
  10. MAXERAN [Concomitant]
     Active Substance: METOCLOPRAMIDE HYDROCHLORIDE
     Dosage: 10 MG (1 IN 1 AS REQUIRED)
     Dates: start: 20130116, end: 20130507
  11. OXYCODONE HYDROCHLORIDE AND ACETAMINOPHEN [Concomitant]
     Active Substance: ACETAMINOPHEN\OXYCODONE HYDROCHLORIDE
     Dosage: 1 TO 2 TABLETS AS NEEDED 5/325 Q 4-6 HRS PRN
     Route: 048
     Dates: start: 20130413, end: 20130501
  12. CLEAR EYES ACR [Concomitant]
     Dosage: 1TO 2 GTT PER DROPS
     Dates: start: 20130207, end: 20141001
  13. COLACE [Concomitant]
     Active Substance: DOCUSATE SODIUM
     Dosage: 100 MG, UNK
     Dates: start: 20130413, end: 20130614
  14. ONDANSETRON HYDROCHLORIDE. [Concomitant]
     Active Substance: ONDANSETRON HYDROCHLORIDE
     Dosage: UNK, PRE CHEMO
  15. MORPHINE                           /00036302/ [Concomitant]
     Active Substance: MORPHINE
     Dosage: 0.5 MG, 4 IN 1 D
     Dates: start: 20130417, end: 20130426
  16. DIPHENHYDRAMINE [Concomitant]
     Active Substance: DIPHENHYDRAMINE
     Dosage: UNK
     Dates: start: 20130410, end: 20130612
  17. DOCETAXEL. [Suspect]
     Active Substance: DOCETAXEL
     Dosage: 134 MG, 1 IN 3 WK
     Route: 065
     Dates: start: 20130501, end: 20130501
  18. TYLENOL [Concomitant]
     Active Substance: ACETAMINOPHEN
     Dosage: 325 TO 650 PER ORAL AS NEEDED PER MG; 1-2 TAB
     Route: 048
     Dates: start: 20100101
  19. ZOFRAN [Concomitant]
     Active Substance: ONDANSETRON HYDROCHLORIDE
     Dosage: PRE CHEMO EACH CYCLE SINGLE DOSE
     Dates: start: 20121215, end: 20130611
  20. ASA [Concomitant]
     Active Substance: ASPIRIN
     Dosage: 81 MG, UNK
     Dates: start: 20130419, end: 20130421
  21. NYSTATIN. [Concomitant]
     Active Substance: NYSTATIN
     Dosage: DAILY DOSE 10000 UNIT (1 IN 6 HR)
     Dates: start: 20130417
  22. NEUPOGEN [Suspect]
     Active Substance: FILGRASTIM
     Dosage: 300 MCG, 10 DAYS
     Route: 065
     Dates: start: 20130501, end: 20130510

REACTIONS (2)
  - Pyrexia [Recovered/Resolved]
  - Febrile neutropenia [Recovered/Resolved]

NARRATIVE: CASE EVENT DATE: 20130417
